FAERS Safety Report 8836305 (Version 1)
Quarter: 2012Q4

REPORT INFORMATION
  Report Type: Report from Study
  Country: US (occurrence: US)
  Receive Date: 20121011
  Receipt Date: 20121011
  Transmission Date: 20130627
  Serious: Yes (Death, Hospitalization, Other)
  Sender: FDA-Public Use
  Company Number: US-GENZYME-MOZO-1000758

PATIENT
  Age: 63 Year
  Sex: Male
  Weight: 54 kg

DRUGS (52)
  1. MOZOBIL [Suspect]
     Indication: ACUTE MYELOID LEUKAEMIA
     Dosage: 750 mcg/kg, on days 3-8
     Route: 042
     Dates: start: 20120919, end: 20120928
  2. MOZOBIL [Suspect]
     Dosage: 40.350 mcg, UNK
     Route: 042
     Dates: start: 20120916
  3. CYTARABINE [Suspect]
     Indication: ACUTE MYELOID LEUKAEMIA
     Dosage: 1.54 g/m2, qd on days 4-8
     Route: 042
     Dates: start: 20120920
  4. CYTARABINE [Suspect]
     Dosage: 1.54 g/m2, qd on days 4-8
     Route: 042
     Dates: start: 20120916
  5. G-CSF [Suspect]
     Indication: ACUTE MYELOID LEUKAEMIA
     Dosage: UNK
     Route: 065
  6. MITOXANTRONE [Suspect]
     Indication: ACUTE MYELOID LEUKAEMIA
     Dosage: 12 mg, qd
     Route: 042
  7. ETOPOSIDE [Suspect]
     Indication: ACUTE MYELOID LEUKAEMIA
     Dosage: 154 mg, qd
     Route: 042
  8. FAMOTIDINE [Concomitant]
     Indication: PROPHYLAXIS
     Dosage: UNK
     Route: 065
  9. THROMBOEMBOLIC DETERRENT STOCKINGS [Concomitant]
     Indication: THROMBOSIS PROPHYLAXIS
     Dosage: UNK
     Route: 065
  10. SEQUENTIAL COMPRESSION DEVICES [Concomitant]
     Indication: THROMBOSIS PROPHYLAXIS
     Dosage: UNK
     Route: 065
  11. XOPENEX [Concomitant]
     Indication: PRODUCT USED FOR UNKNOWN INDICATION
     Dosage: UNK
     Route: 065
  12. INSULIN [Concomitant]
     Indication: DIABETES MELLITUS
     Dosage: UNK
     Route: 065
  13. ATOVAQUONE [Concomitant]
     Indication: PRODUCT USED FOR UNKNOWN INDICATION
     Dosage: 750 mg/ml, qd
     Route: 048
     Dates: start: 20120910
  14. ALLOPURINOL [Concomitant]
     Indication: PRODUCT USED FOR UNKNOWN INDICATION
     Dosage: UNK
     Route: 065
  15. CARVEDILOL [Concomitant]
     Indication: HYPERTENSION
     Dosage: 6.25 mg, q12hr
     Route: 065
  16. LOSARTAN [Concomitant]
     Indication: HYPERTENSION
     Dosage: 100 mg, qd
     Route: 048
     Dates: start: 20120916
  17. PREDNISOLONE [Concomitant]
     Indication: PRODUCT USED FOR UNKNOWN INDICATION
     Dosage: 2 gtt, tiw
     Route: 065
     Dates: start: 20120916
  18. ENALAPRIL [Concomitant]
     Indication: PRODUCT USED FOR UNKNOWN INDICATION
     Dosage: 0.625 mg, q 6 h
     Route: 042
  19. KEPPRA [Concomitant]
     Indication: CONVULSION PROPHYLAXIS
     Dosage: 500 mg, q12hr
     Route: 042
  20. KEPPRA [Concomitant]
     Dosage: 1000 mg, q12hr
     Route: 042
  21. MEROPENEM [Concomitant]
     Indication: PRODUCT USED FOR UNKNOWN INDICATION
     Dosage: 1 g, q12hr
     Route: 042
  22. NICARDIPINE [Concomitant]
     Indication: PRODUCT USED FOR UNKNOWN INDICATION
     Dosage: 50 mg, NA
     Route: 042
  23. VALACICLOVIR [Concomitant]
     Indication: PRODUCT USED FOR UNKNOWN INDICATION
     Dosage: 500 mg, qd
     Route: 048
     Dates: start: 20120916
  24. SOLU-MEDROL [Concomitant]
     Indication: PRODUCT USED FOR UNKNOWN INDICATION
     Dosage: UNK
     Route: 065
  25. SODIUM CHLORIDE [Concomitant]
     Indication: PRODUCT USED FOR UNKNOWN INDICATION
     Dosage: 1000 ml, qd
     Route: 042
     Dates: start: 20120912
  26. SODIUM CHLORIDE [Concomitant]
     Dosage: 50 ml, infuse over 30 min at 100 ml/hr
     Route: 042
     Dates: start: 20120912
  27. NAFCILLIN [Concomitant]
     Indication: PRODUCT USED FOR UNKNOWN INDICATION
     Dosage: 2 g, UNK
  28. POTASSIUM CHLORIDE [Concomitant]
     Indication: PRODUCT USED FOR UNKNOWN INDICATION
     Dosage: 20 mEq, qd
     Route: 042
  29. POTASSIUM CHLORIDE [Concomitant]
     Dosage: 100 ml, qd
     Route: 042
     Dates: start: 20120913
  30. POTASSIUM CHLORIDE [Concomitant]
     Dosage: 40 mEq, qd
     Route: 042
     Dates: start: 20120916
  31. ONDANSETRON [Concomitant]
     Indication: PRODUCT USED FOR UNKNOWN INDICATION
     Dosage: 24 mg, qd
     Route: 042
  32. ONDANSETRON [Concomitant]
     Dosage: 8 mg, qd
     Route: 042
  33. DEXTROSE [Concomitant]
     Indication: PRODUCT USED FOR UNKNOWN INDICATION
     Dosage: 12.5 g, UNK
     Route: 042
  34. NYSTATIN [Concomitant]
     Indication: PRODUCT USED FOR UNKNOWN INDICATION
     Dosage: 500 UNK, tiw
     Route: 048
     Dates: start: 20120916
  35. MUPIROCIN [Concomitant]
     Indication: PRODUCT USED FOR UNKNOWN INDICATION
     Dosage: 1 DF, bid
     Route: 045
     Dates: start: 20120916
  36. ATORVASTATIN [Concomitant]
     Indication: PRODUCT USED FOR UNKNOWN INDICATION
     Dosage: 20 mg, qd
     Route: 048
  37. ISOSORBID [Concomitant]
     Indication: PRODUCT USED FOR UNKNOWN INDICATION
     Dosage: 30 mg, qd
     Dates: start: 20120910
  38. FILGRASTIM [Concomitant]
     Indication: PRODUCT USED FOR UNKNOWN INDICATION
     Dosage: 540 mcg, qd
     Route: 058
     Dates: start: 20120917, end: 20120924
  39. HYDROMORPHONE [Concomitant]
     Indication: PRODUCT USED FOR UNKNOWN INDICATION
     Dosage: 1 mg, q3hr
     Route: 042
     Dates: start: 20120910
  40. NORMAL SALINE [Concomitant]
     Indication: PRODUCT USED FOR UNKNOWN INDICATION
     Dosage: 10 ml, q3hr
  41. POTASSIUM PHOSPHATE DIBASIC [Concomitant]
     Indication: PRODUCT USED FOR UNKNOWN INDICATION
     Dosage: 30 mmol, tiw
     Route: 042
     Dates: start: 20120913
  42. SODIUM PHOSPHATE [Concomitant]
     Indication: PRODUCT USED FOR UNKNOWN INDICATION
     Dosage: 30 mmol, tiw
     Route: 042
  43. HYDROCORTISONE [Concomitant]
     Indication: PRODUCT USED FOR UNKNOWN INDICATION
     Dosage: 8 mg, tid
     Route: 042
  44. PROMETHAZINE [Concomitant]
     Indication: PRODUCT USED FOR UNKNOWN INDICATION
     Dosage: 25 ml, q4hr
     Route: 042
     Dates: start: 20120914
  45. ACETAMINOPHEN [Concomitant]
     Indication: PRODUCT USED FOR UNKNOWN INDICATION
     Dosage: 650 mg, q4hr
     Route: 048
     Dates: start: 20120910
  46. ACETAMINOPHEN [Concomitant]
     Dosage: 650 mg, q4hr
     Route: 048
     Dates: start: 20120914
  47. SENNOSIDE [Concomitant]
     Indication: PRODUCT USED FOR UNKNOWN INDICATION
     Dosage: 2 tab, bid
     Route: 048
  48. TRAMADOL [Concomitant]
     Indication: PRODUCT USED FOR UNKNOWN INDICATION
     Dosage: 50 mg, q4hr
     Route: 048
  49. TEMAZEPAM [Concomitant]
     Indication: PRODUCT USED FOR UNKNOWN INDICATION
     Dosage: 15 mg, UNK
     Route: 048
     Dates: start: 20120914
  50. ALMACONE [Concomitant]
     Indication: PRODUCT USED FOR UNKNOWN INDICATION
     Dosage: 15 ml, q4hr
     Route: 048
     Dates: start: 20120914
  51. DIPHENOXYLATE [Concomitant]
     Indication: PRODUCT USED FOR UNKNOWN INDICATION
     Dosage: 1 tab, UNK
     Route: 048
     Dates: start: 20120914
  52. DEXTROMETHORPHAN [Concomitant]
     Indication: PRODUCT USED FOR UNKNOWN INDICATION
     Dosage: 10 ml, q4hr
     Route: 048
     Dates: start: 20120914

REACTIONS (17)
  - Respiratory failure [Fatal]
  - Cardiac arrest [Fatal]
  - Haemorrhage intracranial [Fatal]
  - Subdural haemorrhage [Fatal]
  - Pyrexia [Not Recovered/Not Resolved]
  - Anaphylactic reaction [Unknown]
  - Hyperthermia [Unknown]
  - Coma [Fatal]
  - Cerebral infarction [Fatal]
  - Troponin increased [Unknown]
  - Cerebrovascular accident [Unknown]
  - Hypokalaemia [Unknown]
  - Hypocalcaemia [Unknown]
  - Thrombocytopenia [Unknown]
  - Anaemia [Unknown]
  - Hyperglycaemia [Unknown]
  - Hypomagnesaemia [Unknown]
